FAERS Safety Report 6960002-8 (Version None)
Quarter: 2010Q3

REPORT INFORMATION
  Report Type: 
  Country: None (occurrence: None)
  Receive Date: 20100901
  Receipt Date: 20100818
  Transmission Date: 20110219
  Serious: Yes (Hospitalization)
  Sender: FDA-Public Use
  Company Number: GB-RANBAXY-2010RR-37641

PATIENT
  Age: 30 Year
  Sex: Female
  Weight: 81.4 kg

DRUGS (2)
  1. TOPIRAMATE [Suspect]
     Indication: PARTIAL SEIZURES
     Dosage: 200 MG, BID
     Route: 048
     Dates: start: 20100715
  2. TEGRETOL [Concomitant]
     Indication: EPILEPSY
     Dosage: 300 MG, BID
     Route: 048
     Dates: start: 20070208

REACTIONS (2)
  - ASTHMA [None]
  - EPILEPSY [None]
